FAERS Safety Report 4699786-0 (Version None)
Quarter: 2005Q2

REPORT INFORMATION
  Report Type: 
  Country: None (occurrence: None)
  Receive Date: 20050623
  Receipt Date: 20050610
  Transmission Date: 20051028
  Serious: Yes (Death, Hospitalization)
  Sender: FDA-Public Use
  Company Number: 2003156681US

PATIENT
  Age: 67 Year
  Sex: Female
  Weight: 69.39 kg

DRUGS (16)
  1. CELEBREX [Suspect]
     Indication: ILL-DEFINED DISORDER
     Dosage: 200 MG, ORAL
     Route: 048
     Dates: start: 20000504
  2. HUMULIN N [Concomitant]
  3. VITAPLEX (MINERALS, MULTIVITAMINS) [Concomitant]
  4. LEVAQUIN [Concomitant]
  5. PRILOSEC [Concomitant]
  6. NITRO-DUR (GLYCERL TRINITRATE) [Concomitant]
  7. LANOXIN [Concomitant]
  8. ISOSORBIDE (ISOSORBIDE) [Concomitant]
  9. PROCARDIA XL (NIFEDIPINE)` [Concomitant]
  10. PLAVIX [Concomitant]
  11. TOPROL-XL [Concomitant]
  12. SYNTHROID (LEVOTHYRXOINE SODIUM) [Concomitant]
  13. NTROSTAT (NITRGOGLYCERIN) [Concomitant]
  14. CARDIZEM [Concomitant]
  15. ASPIRIN [Concomitant]
  16. LIPITOR [Concomitant]

REACTIONS (13)
  - AGITATION [None]
  - ANGINA PECTORIS [None]
  - CARDIAC FAILURE CONGESTIVE [None]
  - CARDIO-RESPIRATORY ARREST [None]
  - DECUBITUS ULCER [None]
  - HYPOTENSION [None]
  - PAIN IN EXTREMITY [None]
  - SEPTIC SHOCK [None]
  - SINUS TACHYCARDIA [None]
  - SKIN DISCOLOURATION [None]
  - TORSADE DE POINTES [None]
  - VENTRICULAR FIBRILLATION [None]
  - VENTRICULAR TACHYCARDIA [None]
